FAERS Safety Report 5421823-6 (Version None)
Quarter: 2007Q3

REPORT INFORMATION
  Report Type: 
  Country: None (occurrence: None)
  Receive Date: 20070820
  Receipt Date: 20070814
  Transmission Date: 20080115
  Serious: Yes (Other)
  Sender: FDA-Public Use
  Company Number: 163-20785-07040373

PATIENT
  Age: 42 Year
  Sex: Female

DRUGS (2)
  1. THALOMID [Suspect]
     Indication: METASTASIS
     Dosage: 200 MG, DAILY X28 DAYS, ORAL, 200-400 MG, DAILY X 28 DAYS ORAL
     Route: 048
     Dates: start: 20060701, end: 20061001
  2. THALOMID [Suspect]
     Indication: METASTASIS
     Dosage: 200 MG, DAILY X28 DAYS, ORAL, 200-400 MG, DAILY X 28 DAYS ORAL
     Route: 048
     Dates: start: 20061101

REACTIONS (1)
  - BLOOD HUMAN CHORIONIC GONADOTROPIN INCREASED [None]
